FAERS Safety Report 8989117 (Version 1)
Quarter: 2012Q4

REPORT INFORMATION
  Report Type: 
  Country: JP (occurrence: JP)
  Receive Date: 20121228
  Receipt Date: 20121228
  Transmission Date: 20130627
  Serious: Yes (Hospitalization, Other)
  Sender: FDA-Public Use
  Company Number: JP-ASTELLAS-2012JP005888

PATIENT
  Age: 34 Year
  Sex: Female

DRUGS (3)
  1. PROGRAF [Suspect]
     Indication: MYASTHENIA GRAVIS
     Dosage: UNK
     Route: 065
  2. CORTICOSTEROID NOS [Suspect]
     Dosage: UNK
     Route: 065
  3. CORTICOSTEROID NOS [Suspect]
     Dosage: UNK
     Route: 065

REACTIONS (4)
  - Drug ineffective [Unknown]
  - Pneumonia [Unknown]
  - Infectious pleural effusion [Unknown]
  - Myasthenia gravis [Unknown]
